FAERS Safety Report 12484926 (Version 2)
Quarter: 2016Q3

REPORT INFORMATION
  Report Type: Spontaneous
  Country: US (occurrence: US)
  Receive Date: 20160621
  Receipt Date: 20160729
  Transmission Date: 20161109
  Serious: No
  Sender: FDA-Public Use
  Company Number: US-GLAXOSMITHKLINE-US2016081829

PATIENT
  Sex: Female
  Weight: 58.5 kg

DRUGS (1)
  1. TANZEUM [Suspect]
     Active Substance: ALBIGLUTIDE
     Indication: DIABETES MELLITUS INADEQUATE CONTROL
     Dosage: 30 MG, U
     Route: 042
     Dates: start: 20160106, end: 20160404

REACTIONS (2)
  - Injection site nodule [Unknown]
  - Injection site reaction [Unknown]
